FAERS Safety Report 9081428 (Version 1)
Quarter: 2013Q1

REPORT INFORMATION
  Report Type: Report from Study
  Country: US (occurrence: US)
  Receive Date: 20130130
  Receipt Date: 20130130
  Transmission Date: 20140127
  Serious: Yes (Other)
  Sender: FDA-Public Use
  Company Number: US-ABBOTT-12P-163-0966336-00

PATIENT
  Age: 18 Year
  Sex: Female

DRUGS (6)
  1. HUMIRA 40 MG/0.8 ML PEN [Suspect]
     Indication: CROHN^S DISEASE
     Dates: start: 20120511, end: 20120804
  2. HUMIRA 40 MG/0.8 ML PEN [Suspect]
     Dates: start: 20120825
  3. TRAZODONE [Concomitant]
     Indication: PAIN
     Dosage: AT BEDTIME AND PRN, GIVEN BY G-TUBE
  4. MIRALAX [Concomitant]
     Indication: ABNORMAL FAECES
     Dosage: 1 DOSING CUP FULL, PRN, GIVEN BY G-TUBE
  5. NEXIUM [Concomitant]
     Indication: GASTROOESOPHAGEAL REFLUX DISEASE
     Dosage: PACK, GIVEN BY G-TUBE, TWICE DAILY
  6. FORMULA VIVONEX [Concomitant]
     Indication: NUTRITIONAL SUPPLEMENTATION
     Dosage: Q 3 HRS WHILE AWAKE-UP TO 5 PKS, G-TUBE
     Route: 050

REACTIONS (3)
  - Arthralgia [Not Recovered/Not Resolved]
  - Haematochezia [Not Recovered/Not Resolved]
  - Crohn^s disease [Not Recovered/Not Resolved]
